FAERS Safety Report 12133671 (Version 2)
Quarter: 2016Q3

REPORT INFORMATION
  Report Type: Report from Study
  Country: US (occurrence: US)
  Receive Date: 20160301
  Receipt Date: 20160831
  Transmission Date: 20161109
  Serious: Yes (Other)
  Sender: FDA-Public Use
  Company Number: US-TEVA-639237USA

PATIENT
  Sex: Female

DRUGS (1)
  1. CLARAVIS [Suspect]
     Active Substance: ISOTRETINOIN
     Dosage: 60 MILLIGRAM DAILY;
     Route: 048
     Dates: start: 20160131, end: 20160210

REACTIONS (1)
  - Unintended pregnancy [Unknown]
